FAERS Safety Report 9353859 (Version 1)
Quarter: 2013Q2

REPORT INFORMATION
  Report Type: Spontaneous
  Country: DE (occurrence: DE)
  Receive Date: 20130618
  Receipt Date: 20130618
  Transmission Date: 20140414
  Serious: Yes (Congenital Anomaly)
  Sender: FDA-Public Use
  Company Number: DE-MYLANLABS-2013S1012240

PATIENT
  Age: 0 Year
  Sex: Female
  Weight: 2.9 kg

DRUGS (2)
  1. OMEPRAZOLE [Suspect]
     Indication: GASTROOESOPHAGEAL REFLUX DISEASE
     Route: 064
     Dates: start: 20110421, end: 20110519
  2. FOLIO FORTE [Concomitant]
     Dosage: 0.8 [MG/D ]
     Route: 064
     Dates: start: 20110306

REACTIONS (5)
  - Atrial septal defect [Recovered/Resolved]
  - Congenital arteriovenous fistula [Not Recovered/Not Resolved]
  - Hypotonia neonatal [Recovering/Resolving]
  - Motor developmental delay [Unknown]
  - Exposure during pregnancy [Unknown]
